FAERS Safety Report 16625705 (Version 1)
Quarter: 2019Q3

REPORT INFORMATION
  Report Type: Spontaneous
  Country: US (occurrence: US)
  Receive Date: 20190611
  Receipt Date: 20190611
  Transmission Date: 20191004
  Serious: No
  Sender: FDA-Public Use
  Company Number: None

PATIENT
  Age: 86 Year
  Sex: Female

DRUGS (1)
  1. FLUOROURACIL. [Suspect]
     Active Substance: FLUOROURACIL

REACTIONS (6)
  - Device malfunction [None]
  - Device leakage [None]
  - Vision blurred [None]
  - Infusion site haemorrhage [None]
  - Device breakage [None]
  - Refusal of treatment by patient [None]

NARRATIVE: CASE EVENT DATE: 20190530
